FAERS Safety Report 9491623 (Version 1)
Quarter: 2013Q3

REPORT INFORMATION
  Report Type: Spontaneous
  Country: BR (occurrence: BR)
  Receive Date: 20130830
  Receipt Date: 20130830
  Transmission Date: 20140515
  Serious: Yes (Other)
  Sender: FDA-Public Use
  Company Number: BR-SANOFI-AVENTIS-2013SA084900

PATIENT
  Age: 66 Year
  Sex: Female
  Weight: 64 kg

DRUGS (13)
  1. PLAVIX [Suspect]
     Indication: CEREBRAL ISCHAEMIA
     Route: 048
  2. PLAVIX [Interacting]
     Indication: CEREBRAL ISCHAEMIA
     Route: 048
  3. NATURETTI [Interacting]
     Indication: CONSTIPATION
     Dosage: DOSE:1 UNIT(S)
     Route: 048
     Dates: start: 201307
  4. NATURETTI [Interacting]
     Indication: CONSTIPATION
     Dosage: DOSE:1 UNIT(S)
     Route: 048
  5. ATENSINA [Concomitant]
     Indication: BLOOD PRESSURE
     Route: 065
     Dates: start: 2013, end: 201308
  6. PURAN T4 [Concomitant]
     Indication: THYROID DISORDER
     Dosage: AT 3 A.M.
     Route: 048
  7. ALLEGRA [Concomitant]
     Indication: HYPERSENSITIVITY
     Route: 048
  8. FRONTAL [Concomitant]
     Indication: ANXIETY
     Route: 048
  9. RIVOTRIL [Concomitant]
     Indication: ISCHAEMIA
     Route: 048
     Dates: start: 2009
  10. ARADOIS [Concomitant]
     Indication: ASTHMA
     Route: 048
     Dates: start: 201308
  11. ARADOIS [Concomitant]
     Indication: BLOOD PRESSURE
     Route: 048
     Dates: start: 201308
  12. SINVASTACOR [Concomitant]
     Indication: BLOOD CHOLESTEROL
     Dosage: AT 4 P.M
     Route: 048
  13. FORASEQ [Concomitant]
     Indication: DYSPNOEA
     Dosage: 2 TABS IN THE MORNING AND 2 TABS AT NIGHT
     Route: 055
     Dates: start: 2009

REACTIONS (7)
  - Cardiac arrest [Unknown]
  - Tachycardia [Unknown]
  - Functional gastrointestinal disorder [Unknown]
  - Dyspnoea [Unknown]
  - Heart rate increased [Unknown]
  - Insomnia [Unknown]
  - Drug interaction [Unknown]
